FAERS Safety Report 10164747 (Version 1)
Quarter: 2014Q2

REPORT INFORMATION
  Report Type: Spontaneous
  Country: US (occurrence: US)
  Receive Date: 20140510
  Receipt Date: 20140510
  Transmission Date: 20141212
  Serious: No
  Sender: FDA-Public Use
  Company Number: US-BRISTOL-MYERS SQUIBB COMPANY-19596550

PATIENT
  Age: 58 Year
  Sex: Female
  Weight: 86.17 kg

DRUGS (3)
  1. BYDUREON [Suspect]
  2. WELCHOL [Concomitant]
  3. XENICAL [Concomitant]

REACTIONS (1)
  - Injection site pain [Recovered/Resolved]
